FAERS Safety Report 4400755-6 (Version None)
Quarter: 2004Q3

REPORT INFORMATION
  Report Type: 
  Country: None (occurrence: None)
  Receive Date: 20040714
  Receipt Date: 20040702
  Transmission Date: 20050211
  Serious: Yes (Hospitalization)
  Sender: FDA-Public Use
  Company Number: 2004-117377-NL

PATIENT
  Age: 49 Year
  Sex: Male

DRUGS (4)
  1. MIRTAZAPINE [Suspect]
     Dosage: 30 MG, ORAL
     Route: 048
     Dates: end: 20040430
  2. NAPROXEN [Concomitant]
  3. SIMVASTATIN [Concomitant]
  4. CITALOPRAM [Concomitant]

REACTIONS (6)
  - ABNORMAL DREAMS [None]
  - AGGRESSION [None]
  - DYSPNOEA [None]
  - HOMICIDAL IDEATION [None]
  - VOMITING [None]
  - WEIGHT INCREASED [None]
